FAERS Safety Report 6168833-1 (Version None)
Quarter: 2009Q2

REPORT INFORMATION
  Report Type: 
  Country: None (occurrence: None)
  Receive Date: 20090427
  Receipt Date: 20090416
  Transmission Date: 20091009
  Serious: Yes (Hospitalization)
  Sender: FDA-Public Use
  Company Number: FR-AMGEN-UK310352

PATIENT
  Sex: Male

DRUGS (28)
  1. PANITUMUMAB [Suspect]
     Indication: SQUAMOUS CELL CARCINOMA
     Route: 042
     Dates: start: 20080826
  2. ACETAMINOPHEN AND CODEINE PHOSPHATE [Concomitant]
     Dates: start: 20080808, end: 20080927
  3. LEVOTHYROX [Concomitant]
     Dates: start: 20080815
  4. DIFFU K [Concomitant]
     Dates: start: 20080802, end: 20080901
  5. PLITICAN [Concomitant]
     Dates: start: 20080917, end: 20080917
  6. PEGFILGRASTIM [Concomitant]
     Dates: start: 20080917, end: 20080917
  7. PREDNISONE [Concomitant]
     Dates: start: 20080915, end: 20080917
  8. DEXAMETHASONE [Concomitant]
     Dates: start: 20080916, end: 20080916
  9. APREPITANT [Concomitant]
     Dates: start: 20080916, end: 20080916
  10. ONDANSETRON [Concomitant]
     Dates: start: 20080916, end: 20080916
  11. VOGALENE [Concomitant]
     Dates: start: 20080918, end: 20080920
  12. ASPEGIC 1000 [Concomitant]
     Dates: start: 20080901, end: 20080927
  13. NAFTIDROFURYL [Concomitant]
     Dates: start: 20080901, end: 20080927
  14. HEPTAMINOL HYDROCHLORIDE [Concomitant]
     Dates: start: 20080927, end: 20080927
  15. PARACETAMOL [Concomitant]
     Dates: start: 20080930, end: 20081004
  16. ACUPAN [Concomitant]
     Dates: start: 20080930, end: 20081001
  17. VITAMIN K [Concomitant]
     Dates: start: 20081008, end: 20081008
  18. ALPRAZOLAM [Concomitant]
     Dates: start: 20080930, end: 20081007
  19. AZANTAC [Concomitant]
     Dates: start: 20081006, end: 20081015
  20. DOCETAXEL [Concomitant]
     Dates: start: 20080826
  21. CISPLATIN [Concomitant]
     Dates: start: 20080826
  22. ZOPICLONE [Concomitant]
     Dates: start: 20081027
  23. FONDAPARINUX SODIUM [Concomitant]
     Dates: start: 20081027
  24. POTASSIUM CHLORIDE [Concomitant]
     Dates: start: 20080927, end: 20081015
  25. SODIUM CHLORIDE [Concomitant]
     Dates: start: 20081006, end: 20081015
  26. PARACETAMOL [Concomitant]
     Dates: start: 20081024, end: 20081106
  27. HYOSCINE [Concomitant]
     Dates: start: 20081002, end: 20081005
  28. AUGMENTIN '125' [Concomitant]

REACTIONS (1)
  - CLOSTRIDIUM DIFFICILE COLITIS [None]
